FAERS Safety Report 5249957-X (Version None)
Quarter: 2007Q1

REPORT INFORMATION
  Report Type: 
  Country: None (occurrence: None)
  Receive Date: 20070228
  Receipt Date: 20060111
  Transmission Date: 20070707
  Serious: No
  Sender: FDA-Public Use
  Company Number: US-GLAXOSMITHKLINE-A0588790A

PATIENT
  Age: 70 Year
  Sex: Male

DRUGS (5)
  1. LAMICTAL [Suspect]
     Indication: DRUG USE FOR UNKNOWN INDICATION
     Dosage: 25MG PER DAY
     Route: 048
     Dates: start: 20051217
  2. ALTACE [Concomitant]
  3. CLONAZEPAM [Concomitant]
  4. BETOPTIC [Concomitant]
  5. ASPIRIN [Concomitant]

REACTIONS (5)
  - ARTHRALGIA [None]
  - COUGH [None]
  - EPISTAXIS [None]
  - RHINORRHOEA [None]
  - SNEEZING [None]
